FAERS Safety Report 6624859-2 (Version None)
Quarter: 2010Q1

REPORT INFORMATION
  Report Type: 
  Country: None (occurrence: None)
  Receive Date: 20100223
  Receipt Date: 20091117
  Transmission Date: 20100710
  Serious: No
  Sender: FDA-Public Use
  Company Number: 8054688

PATIENT
  Sex: Female
  Weight: 88.6 kg

DRUGS (6)
  1. CERTOLIZUMAB PEGOL (UCB, INC) [Suspect]
     Indication: RHEUMATOID ARTHRITIS
     Dosage: 400 MG 1X/2 WEEKS, EVERY TWO WEEKS 1 SUBCUTANEOUS
     Route: 058
     Dates: start: 20091001, end: 20091001
  2. METHOTREXATE [Concomitant]
  3. PREDNISONE [Concomitant]
  4. MOBIC [Concomitant]
  5. AMLODIPINE [Concomitant]
  6. LISINOPRIL [Concomitant]

REACTIONS (4)
  - ARTHRALGIA [None]
  - INFLUENZA LIKE ILLNESS [None]
  - INJECTION SITE DISCOLOURATION [None]
  - PAIN IN EXTREMITY [None]
